FAERS Safety Report 8423538-9 (Version None)
Quarter: 2012Q2

REPORT INFORMATION
  Report Type: 
  Country: None (occurrence: None)
  Receive Date: 20120323
  Receipt Date: 20110314
  Transmission Date: 20120825
  Serious: Yes (Disabling, Other)
  Sender: FDA-Public Use
  Company Number: 163-21880-11022558

PATIENT
  Age: 83 Year
  Sex: Female
  Weight: 56.6 kg

DRUGS (30)
  1. REVLIMID [Suspect]
     Indication: MULTIPLE MYELOMA
     Dosage: 15 MG, Q 48HRS X 21D, PO ; 10 MG, 1 IN 1 D, PO ; 10 MG, DAILY FOR 21 DAYS EVERY 28 DAYS, PO
     Route: 048
     Dates: start: 20100401
  2. REVLIMID [Suspect]
     Indication: MULTIPLE MYELOMA
     Dosage: 15 MG, Q 48HRS X 21D, PO ; 10 MG, 1 IN 1 D, PO ; 10 MG, DAILY FOR 21 DAYS EVERY 28 DAYS, PO
     Route: 048
     Dates: start: 20100304
  3. REVLIMID [Suspect]
     Indication: MULTIPLE MYELOMA
     Dosage: 15 MG, Q 48HRS X 21D, PO ; 10 MG, 1 IN 1 D, PO ; 10 MG, DAILY FOR 21 DAYS EVERY 28 DAYS, PO
     Route: 048
     Dates: start: 20101124
  4. LEVOTHROID (LEVOTHYROID SODIUM) [Concomitant]
  5. ATORVASTATIN [Concomitant]
  6. GRAPE SEED (GRAPE SEED) [Concomitant]
  7. PRASTERONE [Concomitant]
  8. OXYCODONE-ACETAMINOPHEN (OXYCOCET) [Concomitant]
  9. CORTISONE ACETATE [Concomitant]
  10. CALCIUM CARBONATE [Concomitant]
  11. INDAPAMIDE [Concomitant]
  12. PREMARIN [Concomitant]
  13. POTASSIUM CHLORIDE [Concomitant]
  14. DIGESTIVE ENZYME (DIGESTIVES ENZYMES) [Concomitant]
  15. ACYCLOVIR [Concomitant]
  16. ZOMETA [Concomitant]
  17. GLUCOSAMIN SULFATE (GLUCOSAMINE SULFATE) [Concomitant]
  18. METOPROLOL SUCCINATE [Concomitant]
  19. ASPIRIN [Concomitant]
  20. MSM (METHYLSULFONYLMETHANE) [Concomitant]
  21. ZINC (ZINC) [Concomitant]
  22. VITAMIN D [Concomitant]
  23. ENOXAPARIN SODIUM [Concomitant]
  24. DIAZEPAM [Concomitant]
  25. DEXAMETHASONE [Concomitant]
  26. MAGNESIUM (MAGNESIUM) [Concomitant]
  27. SPIRONOLACTONE [Concomitant]
  28. MULTI-VITAMINS [Concomitant]
  29. CYANOCOBALAMIN [Concomitant]
  30. PAMIDRONATE DISODIUM [Concomitant]

REACTIONS (5)
  - DEEP VEIN THROMBOSIS [None]
  - DIZZINESS [None]
  - NEUROPATHY PERIPHERAL [None]
  - BLOOD CREATININE INCREASED [None]
  - PAIN IN EXTREMITY [None]
